FAERS Safety Report 19801432 (Version 2)
Quarter: 2021Q3

REPORT INFORMATION
  Report Type: Spontaneous
  Country: US (occurrence: US)
  Receive Date: 20210908
  Receipt Date: 20210915
  Transmission Date: 20211014
  Serious: Yes (Other)
  Sender: FDA-Public Use
  Company Number: US-CELGENEUS-USA-20210809353

PATIENT
  Sex: Male

DRUGS (1)
  1. REVLIMID [Suspect]
     Active Substance: LENALIDOMIDE
     Indication: PLASMA CELL MYELOMA
     Dosage: 15 MILLIGRAM
     Route: 048
     Dates: start: 20210816

REACTIONS (4)
  - Fatigue [Not Recovered/Not Resolved]
  - Full blood count decreased [Recovering/Resolving]
  - Dizziness [Recovering/Resolving]
  - Back pain [Not Recovered/Not Resolved]
